FAERS Safety Report 21984289 (Version 1)
Quarter: 2023Q1

REPORT INFORMATION
  Report Type: Spontaneous
  Country: US (occurrence: None)
  Receive Date: 20230209
  Receipt Date: 20230209
  Transmission Date: 20230417
  Serious: Yes (Death)
  Sender: FDA-Public Use
  Company Number: None

PATIENT
  Age: 72 Year
  Sex: Male

DRUGS (2)
  1. TIVICAY [Suspect]
     Active Substance: DOLUTEGRAVIR SODIUM
     Indication: HIV infection
     Dosage: FREQUENCY : DAILY;?OTHER ROUTE : JTB;?
     Route: 050
     Dates: start: 20221130, end: 202301
  2. EMTRICITABINE\TENOFOVIR [Suspect]
     Active Substance: EMTRICITABINE\TENOFOVIR
     Indication: HIV infection
     Dosage: OTHER QUANTITY : 200-300MG TABS;?FREQUENCY : EVERY OTHER DAY;?OTHER ROUTE : JTB;?
     Route: 050
     Dates: start: 20221130, end: 202301

REACTIONS (3)
  - HIV infection [None]
  - Prostate cancer [None]
  - Disease progression [None]

NARRATIVE: CASE EVENT DATE: 20230113
